FAERS Safety Report 22159849 (Version 1)
Quarter: 2023Q1

REPORT INFORMATION
  Report Type: Report from Study
  Country: CA (occurrence: CA)
  Receive Date: 20230331
  Receipt Date: 20230331
  Transmission Date: 20230417
  Serious: Yes (Disabling, Other)
  Sender: FDA-Public Use
  Company Number: CA-TAKEDA-2023TUS032740

PATIENT
  Age: 46 Year
  Sex: Female

DRUGS (9)
  1. VEDOLIZUMAB [Suspect]
     Active Substance: VEDOLIZUMAB
     Indication: Crohn^s disease
     Dosage: 300 MILLIGRAM
     Route: 042
     Dates: start: 20170517
  2. VEDOLIZUMAB [Suspect]
     Active Substance: VEDOLIZUMAB
     Dosage: 300 MILLIGRAM, Q4WEEKS
     Route: 042
     Dates: start: 20170727
  3. VEDOLIZUMAB [Suspect]
     Active Substance: VEDOLIZUMAB
     Dosage: 300 MILLIGRAM
     Route: 042
     Dates: start: 20210921
  4. VEDOLIZUMAB [Suspect]
     Active Substance: VEDOLIZUMAB
     Dosage: 300 MILLIGRAM, Q4WEEKS
     Route: 042
     Dates: start: 20230119
  5. VITAMIN D [Concomitant]
     Active Substance: VITAMIN D NOS
     Dosage: 10000 UNK
  6. OXAZEPAM [Concomitant]
     Active Substance: OXAZEPAM
     Dosage: UNK
  7. COSENTYX [Concomitant]
     Active Substance: SECUKINUMAB
     Dosage: 150 MILLIGRAM
  8. PLAQUENIL [Concomitant]
     Active Substance: HYDROXYCHLOROQUINE SULFATE
     Dosage: 200 MILLIGRAM
  9. PREDNISONE [Concomitant]
     Active Substance: PREDNISONE
     Dosage: 20 MILLIGRAM

REACTIONS (2)
  - Ankylosing spondylitis [Unknown]
  - Off label use [Unknown]

NARRATIVE: CASE EVENT DATE: 20170727
